FAERS Safety Report 16794125 (Version 1)
Quarter: 2019Q3

REPORT INFORMATION
  Report Type: Spontaneous
  Country: DE (occurrence: DE)
  Receive Date: 20190911
  Receipt Date: 20190911
  Transmission Date: 20191005
  Serious: Yes (Congenital Anomaly, Other)
  Sender: FDA-Public Use
  Company Number: DE-TORRENT-00015456

PATIENT
  Sex: Female
  Weight: 2 kg

DRUGS (4)
  1. VIMPAT [Suspect]
     Active Substance: LACOSAMIDE
     Indication: EPILEPSY
     Dosage: TOTAL DAILY DOSE: 200MG, GESTATIONAL WEEK: 11-12
     Route: 064
     Dates: start: 2011, end: 2011
  2. LAMOTRIGINE. [Suspect]
     Active Substance: LAMOTRIGINE
     Indication: EPILEPSY
     Dosage: TOTAL DAILY DOSE: 275MG, GESTATIONAL WEEK: 12-13
     Route: 064
     Dates: start: 2011, end: 2011
  3. ZEBINIX [Concomitant]
     Active Substance: ESLICARBAZEPINE ACETATE
     Indication: EPILEPSY
     Dosage: TOTAL DAILY DOSE: 200MG, 0-4.5 GESTATIONAL WEEK
     Route: 064
     Dates: start: 201103, end: 20110323
  4. FOLIO FORTE [Concomitant]
     Active Substance: FOLIC ACID\VITAMINS
     Indication: PROPHYLAXIS OF NEURAL TUBE DEFECT
     Dosage: 8.3-41 GASTATIONAL WEEK
     Route: 064
     Dates: start: 20110418, end: 20111202

REACTIONS (4)
  - Small for dates baby [Unknown]
  - Directional Doppler flow tests abnormal [Recovered/Resolved]
  - Atrial septal defect [Recovered/Resolved]
  - Foetal exposure during pregnancy [Unknown]

NARRATIVE: CASE EVENT DATE: 201103
